FAERS Safety Report 26109649 (Version 1)
Quarter: 2025Q4

REPORT INFORMATION
  Report Type: Other
  Country: US (occurrence: US)
  Receive Date: 20251201
  Receipt Date: 20251201
  Transmission Date: 20260118
  Serious: Yes (Hospitalization)
  Sender: SHEFFIELD
  Company Number: US-Sheffield Pharmaceuticals, LLC-2189566

PATIENT
  Age: 31 Year
  Sex: Female

DRUGS (2)
  1. EQUATE VAGICAINE MAXIMUM STRENGTH [Suspect]
     Active Substance: BENZOCAINE\RESORCINOL
     Indication: Product used for unknown indication
     Dates: start: 20251017, end: 20251021
  2. EQUATE VAGICAINE MAXIMUM STRENGTH [Suspect]
     Active Substance: BENZOCAINE\RESORCINOL
     Dates: start: 20251017, end: 20251021

REACTIONS (1)
  - Chemical burn of genitalia [Recovering/Resolving]

NARRATIVE: CASE EVENT DATE: 20251021
